FAERS Safety Report 20632280 (Version 1)
Quarter: 2022Q1

REPORT INFORMATION
  Report Type: Spontaneous
  Country: CA (occurrence: None)
  Receive Date: 20220324
  Receipt Date: 20220324
  Transmission Date: 20220424
  Serious: Yes (Other)
  Sender: FDA-Public Use
  Company Number: CA-Eisai Medical Research-EC-2022-111088

PATIENT
  Age: 30 Year
  Sex: Male

DRUGS (8)
  1. FYCOMPA [Suspect]
     Active Substance: PERAMPANEL
     Indication: Seizure
     Route: 048
  2. CLOBAZAM [Suspect]
     Active Substance: CLOBAZAM
     Indication: Seizure
     Dosage: DOSE AND FREQUENCY UNKNOWN
     Route: 065
  3. LACOSAMIDE [Suspect]
     Active Substance: LACOSAMIDE
     Indication: Seizure
     Dosage: DOSE AND FREQUENCY UNKNOWN
     Route: 065
  4. LEVETIRACETAM [Suspect]
     Active Substance: LEVETIRACETAM
     Indication: Seizure
     Route: 065
  5. LEVETIRACETAM [Suspect]
     Active Substance: LEVETIRACETAM
     Dosage: DOSE AND FREQUENCY UNKNOWN
     Route: 065
  6. OXCARBAZEPINE [Suspect]
     Active Substance: OXCARBAZEPINE
     Indication: Seizure
     Route: 065
  7. PRIMIDONE [Suspect]
     Active Substance: PRIMIDONE
     Indication: Seizure
     Route: 065
  8. PRIMIDONE [Suspect]
     Active Substance: PRIMIDONE
     Route: 065

REACTIONS (4)
  - Focal dyscognitive seizures [Unknown]
  - Generalised tonic-clonic seizure [Unknown]
  - Partial seizures [Unknown]
  - Multiple-drug resistance [Unknown]
